FAERS Safety Report 9177806 (Version 2)
Quarter: 2012Q4

REPORT INFORMATION
  Report Type: 
  Country: US (occurrence: US)
  Receive Date: 20121011
  Receipt Date: 20121112
  Transmission Date: 20130627
  Serious: Yes (Other)
  Sender: FDA-Public Use
  Company Number: US-RB-045373-12

PATIENT
  Age: 0 None
  Sex: Male

DRUGS (9)
  1. SUBOXONE TABLETS [Suspect]
     Indication: DRUG DEPENDENCE
     Route: 064
     Dates: start: 201103, end: 20110718
  2. PERCOCET [Suspect]
     Indication: RESTLESS LEGS SYNDROME
     Route: 064
     Dates: start: 2010, end: 201103
  3. PERCOCET [Suspect]
     Indication: RESTLESS LEGS SYNDROME
     Route: 064
     Dates: start: 2010, end: 201103
  4. GABAPENTIN [Suspect]
     Indication: EPILEPSY
     Dosage: Dosing details unknown
     Route: 064
     Dates: start: 2010, end: 20110718
  5. PHENERGAN [Suspect]
     Indication: NAUSEA
     Dosage: Dosing details unknown
     Route: 064
     Dates: end: 20110718
  6. VITAMIN B 12 [Suspect]
     Indication: VITAMIN SUPPLEMENTATION
     Dosage: Dosing details unknown
     Route: 064
  7. FOLIC ACID [Suspect]
     Indication: VITAMIN SUPPLEMENTATION
     Dosage: Dosing details unknown
     Route: 064
  8. IRON PILL [Suspect]
     Indication: PRODUCT USED FOR UNKNOWN INDICATION
     Dosage: Dosing details unknown
     Route: 064
  9. PRENATAL VITAMINS [Suspect]
     Indication: PRODUCT USED FOR UNKNOWN INDICATION
     Dosage: Dosing details unknown
     Route: 064

REACTIONS (4)
  - Premature baby [Recovered/Resolved]
  - Respiratory disorder neonatal [Recovered/Resolved]
  - Low birth weight baby [Recovered/Resolved]
  - Foetal exposure during pregnancy [Recovered/Resolved]
